APPROVED DRUG PRODUCT: CARIPRAZINE HYDROCHLORIDE
Active Ingredient: CARIPRAZINE HYDROCHLORIDE
Strength: EQ 6MG BASE
Dosage Form/Route: CAPSULE;ORAL
Application: A213932 | Product #004
Applicant: SUN PHARMACEUTICAL INDUSTRIES LTD
Approved: Sep 30, 2022 | RLD: No | RS: No | Type: DISCN